FAERS Safety Report 18906762 (Version 4)
Quarter: 2021Q2

REPORT INFORMATION
  Report Type: Other
  Country: US (occurrence: US)
  Receive Date: 20210218
  Receipt Date: 20210430
  Transmission Date: 20210717
  Serious: Yes (Hospitalization, Other)
  Sender: FDA-Public Use
  Company Number: US-ROCHE-2768026

PATIENT
  Age: 72 Year
  Sex: Female
  Weight: 69.01 kg

DRUGS (8)
  1. OCREVUS [Suspect]
     Active Substance: OCRELIZUMAB
     Indication: MULTIPLE SCLEROSIS
     Route: 042
     Dates: start: 20180402
  2. VITAMIN B COMPLEX [Concomitant]
     Active Substance: CYANOCOBALAMIN\DEXPANTHENOL\NIACINAMIDE\PYRIDOXINE HYDROCHLORIDE\RIBOFLAVIN 5^-PHOSPHATE SODIUM\THIAMINE HYDROCHLORIDE\VITAMIN B COMPLEX
     Indication: ASTHENIA
     Dosage: STARTED ABOUT 1985
     Route: 048
     Dates: end: 20201111
  3. ACETAMINOPHEN. [Concomitant]
     Active Substance: ACETAMINOPHEN
     Indication: PAIN
     Route: 048
     Dates: start: 202011
  4. OCREVUS [Suspect]
     Active Substance: OCRELIZUMAB
     Indication: RELAPSING MULTIPLE SCLEROSIS
     Dosage: ON 300 MG ON DAY 1 AND 15?SUBSEQUENT DOSE: 16/APR/2018, SEP/2020?DATE OF TREATMENT:  15/OCT/2018, 15
     Route: 042
  5. VITAMINS C [Concomitant]
     Dosage: STARTED A LONG TIME AGO BEFORE OCREVUS
     Route: 048
     Dates: end: 20201111
  6. DIPHENHYDRAMINE. [Concomitant]
     Active Substance: DIPHENHYDRAMINE
     Route: 048
  7. PANTOPRAZOLE [Concomitant]
     Active Substance: PANTOPRAZOLE
     Indication: GASTROOESOPHAGEAL REFLUX DISEASE
     Route: 048
     Dates: start: 2015
  8. METHYLPREDNISOLONE. [Concomitant]
     Active Substance: METHYLPREDNISOLONE
     Dosage: INFUSE OVER 30 MINUTES
     Route: 042

REACTIONS (16)
  - Amnesia [Not Recovered/Not Resolved]
  - Asthenia [Unknown]
  - Paraesthesia [Unknown]
  - COVID-19 [Recovering/Resolving]
  - Speech disorder [Unknown]
  - Blood glucose increased [Not Recovered/Not Resolved]
  - Blood pressure fluctuation [Unknown]
  - Central nervous system infection [Unknown]
  - Loss of consciousness [Recovered/Resolved]
  - Dysphagia [Not Recovered/Not Resolved]
  - Confusional state [Unknown]
  - Coma [Recovered/Resolved]
  - Gait inability [Unknown]
  - Erythema [Recovered/Resolved]
  - Impaired healing [Not Recovered/Not Resolved]
  - Pain [Unknown]

NARRATIVE: CASE EVENT DATE: 2020
